FAERS Safety Report 9825612 (Version 1)
Quarter: 2013Q4

REPORT INFORMATION
  Report Type: Spontaneous
  Country: US (occurrence: None)
  Receive Date: 20131223
  Receipt Date: 20131223
  Transmission Date: 20140711
  Serious: Yes (Other)
  Sender: FDA-Public Use
  Company Number: 221336LEO

PATIENT
  Age: 53 Year
  Sex: Male

DRUGS (5)
  1. PICATO [Suspect]
     Indication: ACTINIC KERATOSIS
     Dosage: 1 IN 1 D, TOPICAL
     Route: 061
     Dates: start: 20130414
  2. METFORMIN (METFORMIN) (1000 MG) [Concomitant]
  3. PAXIL (PAROXETINE HYDROCHORIDE) (40 MG) [Concomitant]
  4. SIMVASTATIN (SIMVASTATIN) (40 MG) [Concomitant]
  5. TOPROL (METOPROLOL SUCCINATE) [Concomitant]

REACTIONS (4)
  - Application site pain [None]
  - Application site pain [None]
  - Application site burn [None]
  - Application site erythema [None]
